FAERS Safety Report 17400642 (Version 4)
Quarter: 2020Q3

REPORT INFORMATION
  Report Type: Spontaneous
  Country: PT (occurrence: PT)
  Receive Date: 20200211
  Receipt Date: 20200704
  Transmission Date: 20201102
  Serious: Yes (Hospitalization, Other)
  Sender: FDA-Public Use
  Company Number: PT-ACCORD-172137

PATIENT
  Age: 58 Year
  Sex: Female

DRUGS (9)
  1. AMILORIDE [Suspect]
     Active Substance: AMILORIDE
     Indication: PRODUCT USED FOR UNKNOWN INDICATION
     Dosage: LESS THAN 1 MONTH AGO AS PRESCRIBE BY THE ASSISTANT CARDIOLOGIST
  2. PITAVASTATIN. [Concomitant]
     Active Substance: PITAVASTATIN CALCIUM
     Indication: DYSLIPIDAEMIA
     Dosage: UNK
  3. NEBIVOLOL. [Concomitant]
     Active Substance: NEBIVOLOL
     Indication: HYPERTENSION
     Dosage: UNK
  4. ALPRAZOLAM. [Concomitant]
     Active Substance: ALPRAZOLAM
     Dosage: UNK
  5. TICLOPIDINE [Suspect]
     Active Substance: TICLOPIDINE
     Indication: PRODUCT USED FOR UNKNOWN INDICATION
     Dosage: UNK
  6. DAPAGLIFLOZIN. [Concomitant]
     Active Substance: DAPAGLIFLOZIN
     Indication: TYPE 2 DIABETES MELLITUS
     Dosage: UNK
  7. HYDROCHLOROTHIAZIDE. [Suspect]
     Active Substance: HYDROCHLOROTHIAZIDE
     Indication: PRODUCT USED FOR UNKNOWN INDICATION
  8. NEBIVOLOL. [Concomitant]
     Active Substance: NEBIVOLOL
     Indication: TYPE 2 DIABETES MELLITUS
     Dosage: UNK
  9. METFORMIN [Concomitant]
     Active Substance: METFORMIN HYDROCHLORIDE
     Indication: TYPE 2 DIABETES MELLITUS
     Dosage: UNK

REACTIONS (12)
  - Pyrexia [Recovered/Resolved]
  - Flushing [Recovered/Resolved]
  - Neutropenia [Recovered/Resolved]
  - Gingival oedema [Unknown]
  - Headache [Recovered/Resolved]
  - Iatrogenic injury [Unknown]
  - Mouth ulceration [Recovered/Resolved]
  - Myalgia [Recovered/Resolved]
  - Lymphocyte morphology abnormal [Unknown]
  - Febrile neutropenia [Recovered/Resolved]
  - Gingival swelling [Recovered/Resolved]
  - Leukopenia [Recovered/Resolved]
